FAERS Safety Report 4508440-7 (Version None)
Quarter: 2004Q4

REPORT INFORMATION
  Report Type: 
  Country: None (occurrence: None)
  Receive Date: 20041123
  Receipt Date: 20040212
  Transmission Date: 20050328
  Serious: Yes (Life-Threatening, Other)
  Sender: FDA-Public Use
  Company Number: US-GLAXOSMITHKLINE-A0497994A

PATIENT
  Age: 66 Year
  Sex: Male
  Weight: 90.9 kg

DRUGS (2)
  1. WELLBUTRIN [Suspect]
     Dosage: 300MG PER DAY
     Route: 048
     Dates: end: 20031225
  2. LEVAQUIN [Suspect]
     Dosage: 500MG PER DAY
     Dates: end: 20031225

REACTIONS (3)
  - ANAPHYLACTOID REACTION [None]
  - ANGIONEUROTIC OEDEMA [None]
  - RASH [None]
